FAERS Safety Report 8877768 (Version 1)
Quarter: 2012Q4

REPORT INFORMATION
  Report Type: Spontaneous
  Country: IT (occurrence: None)
  Receive Date: 20121026
  Receipt Date: 20121026
  Transmission Date: 20130627
  Serious: Yes (Hospitalization)
  Sender: FDA-Public Use
  Company Number: AUR-APL-2012-04561

PATIENT
  Age: 65 Year
  Sex: Female

DRUGS (6)
  1. METFORMIN (METFORMIN) [Suspect]
     Dosage: (3 Dosage forms, 1 D) , Oral
     Route: 048
     Dates: start: 20020201, end: 20120623
  2. LEVOXACIN [Concomitant]
  3. ACETYLSALICYLIC ACID (ACETYLSALICYLIC ACID) [Concomitant]
  4. AMLODIPINE (AMLODIPINE) [Concomitant]
  5. FUROSEMIDE (FUROSEMIDE) [Concomitant]
  6. ATENOLOL (ATENOLOL) [Concomitant]

REACTIONS (1)
  - Hypoglycaemia [None]
